FAERS Safety Report 9988882 (Version 2)
Quarter: 2014Q1

REPORT INFORMATION
  Report Type: Report from Study
  Country: US (occurrence: US)
  Receive Date: 20140310
  Receipt Date: 20140310
  Transmission Date: 20141002
  Serious: No
  Sender: FDA-Public Use
  Company Number: US-ABBVIE-13P-163-1070625-00

PATIENT
  Age: 35 Year
  Sex: Female

DRUGS (7)
  1. HUMIRA [Suspect]
     Indication: CROHN^S DISEASE
     Dosage: 160 MG LOADING DOSE
     Route: 058
     Dates: start: 20130316, end: 20130316
  2. HUMIRA [Suspect]
  3. HUMIRA [Suspect]
     Dates: start: 20130719
  4. QVAR [Concomitant]
     Indication: ASTHMA
     Route: 055
     Dates: end: 201306
  5. QVAR [Concomitant]
     Indication: HYPERSENSITIVITY
  6. FLONASE [Concomitant]
     Indication: ASTHMA
     Dates: end: 201306
  7. ZOFRAN [Concomitant]
     Indication: NAUSEA
     Dates: end: 201306

REACTIONS (10)
  - Menorrhagia [Not Recovered/Not Resolved]
  - Device expulsion [Unknown]
  - Diarrhoea [Not Recovered/Not Resolved]
  - Vomiting [Not Recovered/Not Resolved]
  - Abdominal pain [Not Recovered/Not Resolved]
  - Anxiety [Unknown]
  - Nightmare [Unknown]
  - Stress [Unknown]
  - Anxiety [Unknown]
  - Drug ineffective [Unknown]
